FAERS Safety Report 22372139 (Version 2)
Quarter: 2023Q4

REPORT INFORMATION
  Report Type: Spontaneous
  Country: US (occurrence: US)
  Receive Date: 20230526
  Receipt Date: 20231006
  Transmission Date: 20240109
  Serious: No
  Sender: FDA-Public Use
  Company Number: US-INSUD PHARMA-2305US03225

PATIENT

DRUGS (1)
  1. SLYND [Suspect]
     Active Substance: DROSPIRENONE
     Indication: Contraception
     Dosage: UNKNOWN
     Route: 048
     Dates: start: 202302

REACTIONS (8)
  - Stress [Unknown]
  - Fatigue [Unknown]
  - Abdominal distension [Unknown]
  - Breast tenderness [Unknown]
  - Premenstrual syndrome [Unknown]
  - Menstrual disorder [Unknown]
  - Intermenstrual bleeding [Unknown]
  - Amenorrhoea [Recovered/Resolved]

NARRATIVE: CASE EVENT DATE: 20230101
